FAERS Safety Report 12234655 (Version 1)
Quarter: 2016Q2

REPORT INFORMATION
  Report Type: Spontaneous
  Country: US (occurrence: None)
  Receive Date: 20160401
  Receipt Date: 20160401
  Transmission Date: 20160815
  Serious: Yes (Hospitalization)
  Sender: FDA-Public Use
  Company Number: None

PATIENT
  Age: 57 Year
  Sex: Female
  Weight: 80.7 kg

DRUGS (1)
  1. BENZOCAINE, 20% [Suspect]
     Active Substance: BENZOCAINE
     Indication: OROPHARYNGEAL PAIN
     Route: 061
     Dates: start: 20160309, end: 20160309

REACTIONS (2)
  - Oxygen saturation decreased [None]
  - Methaemoglobinaemia [None]

NARRATIVE: CASE EVENT DATE: 20160309
